FAERS Safety Report 7176415-8 (Version None)
Quarter: 2010Q4

REPORT INFORMATION
  Report Type: 
  Country: None (occurrence: None)
  Receive Date: 20101220
  Receipt Date: 20101206
  Transmission Date: 20110411
  Serious: Yes (Hospitalization)
  Sender: FDA-Public Use
  Company Number: US-EISAI INC.-E7389-01081-CLI-US

PATIENT
  Sex: Male
  Weight: 68 kg

DRUGS (4)
  1. E7389 (BOLD) [Suspect]
     Indication: NON-SMALL CELL LUNG CANCER
     Route: 041
     Dates: start: 20101116
  2. ERLOTINIB [Concomitant]
     Indication: NON-SMALL CELL LUNG CANCER
     Route: 048
     Dates: start: 20101130
  3. CARAFATE [Concomitant]
     Indication: ANAEMIA
  4. PREDNISONE [Concomitant]
     Indication: ANAEMIA

REACTIONS (3)
  - FAILURE TO THRIVE [None]
  - HYPONATRAEMIA [None]
  - RENAL FAILURE ACUTE [None]
